FAERS Safety Report 7384004-5 (Version None)
Quarter: 2011Q1

REPORT INFORMATION
  Report Type: 
  Country: None (occurrence: None)
  Receive Date: 20110330
  Receipt Date: 20110322
  Transmission Date: 20110831
  Serious: Yes (Hospitalization, Other)
  Sender: FDA-Public Use
  Company Number: US-B.I. PHARMACEUTICALS,INC./RIDGEFIELD-2011-BP-08852BP

PATIENT
  Sex: Female

DRUGS (13)
  1. PROMETRIUM [Concomitant]
     Indication: MENOPAUSE
     Route: 048
  2. AMIODARONE HCL [Concomitant]
     Indication: ATRIAL FIBRILLATION
     Dosage: 200 MG
     Route: 048
  3. PLAVIX [Concomitant]
     Indication: PROPHYLAXIS
     Dosage: 75 MG
     Route: 048
     Dates: start: 20110301
  4. VIT D [Concomitant]
     Indication: PROPHYLAXIS
     Route: 048
  5. VIVELLE-DOT [Concomitant]
     Indication: MENOPAUSE
     Dosage: 0.0375 MG
     Route: 061
  6. COUMADIN [Concomitant]
     Indication: ATRIAL FIBRILLATION
     Dosage: 5 MG
     Route: 048
     Dates: start: 20110301
  7. LEVALO [Concomitant]
     Indication: BLOOD CHOLESTEROL ABNORMAL
     Dosage: 2 MG
     Route: 048
  8. METFORMIN [Concomitant]
     Indication: DIABETES MELLITUS
     Dosage: 500 MG
     Route: 048
  9. OMEPRAZOLE [Concomitant]
     Indication: GASTROOESOPHAGEAL REFLUX DISEASE
     Dosage: 20 MG
     Route: 048
  10. DILTIAZEM [Concomitant]
     Indication: HYPERTENSION
     Dosage: 120 MG
     Route: 048
  11. FOLIC ACID [Concomitant]
     Indication: PROPHYLAXIS
     Dosage: 1 MG
     Route: 048
  12. PRADAXA [Suspect]
     Indication: ATRIAL FIBRILLATION
     Dosage: 300 MG
     Route: 048
     Dates: start: 20101114, end: 20110314
  13. LOVAZA [Concomitant]
     Indication: BLOOD CHOLESTEROL ABNORMAL
     Dosage: 1 G
     Route: 048

REACTIONS (1)
  - MYOCARDIAL INFARCTION [None]
